FAERS Safety Report 9744059 (Version 5)
Quarter: 2014Q1

REPORT INFORMATION
  Report Type: Report from Study
  Country: IL (occurrence: IL)
  Receive Date: 20131210
  Receipt Date: 20140130
  Transmission Date: 20141002
  Serious: Yes (Hospitalization)
  Sender: FDA-Public Use
  Company Number: IL-GLAXOSMITHKLINE-B0919371D

PATIENT
  Age: 59 Year
  Sex: Male

DRUGS (8)
  1. ELTROMBOPAG [Suspect]
     Indication: THROMBOCYTOPENIA
     Dates: start: 20130510, end: 20130713
  2. PREDNISON [Concomitant]
  3. TELFAST [Concomitant]
  4. ZOVIRAX [Concomitant]
  5. CARDILOC [Concomitant]
  6. LOSEC [Concomitant]
  7. MAGNESIUM [Concomitant]
  8. RESPRIN [Concomitant]

REACTIONS (2)
  - Dyspnoea [Not Recovered/Not Resolved]
  - Pulmonary embolism [Not Recovered/Not Resolved]
